FAERS Safety Report 4539881-X (Version None)
Quarter: 2004Q4

REPORT INFORMATION
  Report Type: 
  Country: None (occurrence: None)
  Receive Date: 20041223
  Receipt Date: 20041213
  Transmission Date: 20050328
  Serious: Yes (Other)
  Sender: FDA-Public Use
  Company Number: 2004114235

PATIENT
  Sex: Female

DRUGS (5)
  1. LIPITOR [Suspect]
     Indication: DYSLIPIDAEMIA
     Dosage: 10 MG (10 MG, 1 IN 1 D), ORAL
     Route: 048
     Dates: start: 20011201
  2. CHLORPROPAMIDE [Concomitant]
  3. CARVEDILOL [Concomitant]
  4. METFORMIN HCL [Concomitant]
  5. MODURETIC ^MSD^ (AMILORIDE HYDROCHLORIDE, HYDROCHLOROTHIAZIDE) [Concomitant]

REACTIONS (1)
  - CAROTID ARTERY OCCLUSION [None]
